FAERS Safety Report 13518635 (Version 1)
Quarter: 2017Q2

REPORT INFORMATION
  Report Type: Report from Study
  Country: CA (occurrence: CA)
  Receive Date: 20170505
  Receipt Date: 20170505
  Transmission Date: 20170830
  Serious: Yes (Other)
  Sender: FDA-Public Use
  Company Number: CA-JNJFOC-20170428469

PATIENT

DRUGS (1)
  1. USTEKINUMAB [Suspect]
     Active Substance: USTEKINUMAB
     Indication: PSORIASIS
     Route: 058

REACTIONS (9)
  - Nasopharyngitis [Unknown]
  - Diverticulitis [Unknown]
  - Back pain [Unknown]
  - Bronchitis [Unknown]
  - Urinary tract infection [Unknown]
  - Infection [Unknown]
  - Headache [Unknown]
  - Infestation [Unknown]
  - Sinusitis [Unknown]
